FAERS Safety Report 5951089-X (Version None)
Quarter: 2008Q4

REPORT INFORMATION
  Report Type: 
  Country: None (occurrence: None)
  Receive Date: 20081112
  Receipt Date: 20081112
  Transmission Date: 20090506
  Serious: No
  Sender: FDA-Public Use
  Company Number: None

PATIENT
  Age: 3 Year
  Sex: Male
  Weight: 14.5151 kg

DRUGS (1)
  1. SINGULAIR [Suspect]
     Indication: NASAL CONGESTION
     Dosage: 1 TABLET DAILY PO
     Route: 048
     Dates: start: 20081020, end: 20081110

REACTIONS (5)
  - AGGRESSION [None]
  - AGITATION [None]
  - MIDDLE INSOMNIA [None]
  - SLEEP DISORDER [None]
  - VOMITING [None]
